FAERS Safety Report 25073324 (Version 1)
Quarter: 2025Q1

REPORT INFORMATION
  Report Type: Other
  Country: JP (occurrence: JP)
  Receive Date: 20250313
  Receipt Date: 20250313
  Transmission Date: 20250409
  Serious: Yes (Other)
  Sender: DEXCEL LTD.
  Company Number: JP-DEXPHARM-2025-1254

PATIENT
  Age: 51 Year
  Sex: Female

DRUGS (7)
  1. PREDNISOLONE [Concomitant]
     Active Substance: PREDNISOLONE
  2. AVACOPAN [Suspect]
     Active Substance: AVACOPAN
  3. RITUXIMAB [Concomitant]
     Active Substance: RITUXIMAB
  4. ESOMEPRAZOLE [Suspect]
     Active Substance: ESOMEPRAZOLE
  5. AMLODIPINE [Suspect]
     Active Substance: AMLODIPINE BESYLATE
  6. SULFAMETHIZOLE\TRIMETHOPRIM [Suspect]
     Active Substance: SULFAMETHIZOLE\TRIMETHOPRIM
  7. ELDECALCITOL [Suspect]
     Active Substance: ELDECALCITOL

REACTIONS (1)
  - Erythema multiforme [Unknown]
